FAERS Safety Report 7421112-4 (Version None)
Quarter: 2011Q2

REPORT INFORMATION
  Report Type: 
  Country: None (occurrence: None)
  Receive Date: 20110418
  Receipt Date: 20110408
  Transmission Date: 20111010
  Serious: Yes (Life-Threatening, Hospitalization, Other)
  Sender: FDA-Public Use
  Company Number: CH-ELI_LILLY_AND_COMPANY-CH201103001334

PATIENT
  Sex: Male
  Weight: 70 kg

DRUGS (7)
  1. EFFIENT [Suspect]
     Indication: PERCUTANEOUS CORONARY INTERVENTION
     Dosage: 60 MG, LOADING DOSE
     Route: 065
     Dates: start: 20101023
  2. EFFIENT [Suspect]
     Dosage: 10 MG, QD
     Route: 065
     Dates: end: 20110218
  3. CLEXANE [Concomitant]
     Dosage: 70 MG, BID
     Route: 065
  4. CRESTOR [Concomitant]
     Dosage: 10 MG, QD
     Route: 065
  5. ASPIRIN [Concomitant]
     Dosage: 100 MG, QD
     Route: 065
  6. EPROSARTAN [Concomitant]
     Dosage: 600/12.5UNK, QD
     Route: 065
  7. BELOC ZOK [Concomitant]
     Dosage: 25 MG, QD
     Route: 065

REACTIONS (5)
  - ARTERIOSCLEROSIS CORONARY ARTERY [None]
  - IN-STENT CORONARY ARTERY RESTENOSIS [None]
  - FLUID OVERLOAD [None]
  - RASH [None]
  - OPERATIVE HAEMORRHAGE [None]
